FAERS Safety Report 13812946 (Version 1)
Quarter: 2017Q3

REPORT INFORMATION
  Report Type: Report from Study
  Country: FR (occurrence: FR)
  Receive Date: 20170731
  Receipt Date: 20170731
  Transmission Date: 20171127
  Serious: Yes (Other)
  Sender: FDA-Public Use
  Company Number: FR-ROCHE-1968747

PATIENT

DRUGS (2)
  1. PREDNISONE. [Suspect]
     Active Substance: PREDNISONE
     Indication: NEPHROTIC SYNDROME
     Route: 065
  2. MYCOPHENOLATE MOFETIL. [Suspect]
     Active Substance: MYCOPHENOLATE MOFETIL
     Indication: NEPHROTIC SYNDROME
     Route: 065

REACTIONS (13)
  - Meningitis [Unknown]
  - Ear infection [Unknown]
  - Cerebellar syndrome [Unknown]
  - Pharyngitis [Unknown]
  - Varicella [Unknown]
  - Abdominal pain [Unknown]
  - Viral infection [Unknown]
  - Treatment failure [Unknown]
  - Leukopenia [Unknown]
  - Diarrhoea [Unknown]
  - Infection [Unknown]
  - Rhinitis [Unknown]
  - Bronchitis [Unknown]
